FAERS Safety Report 7054552-6 (Version None)
Quarter: 2010Q4

REPORT INFORMATION
  Report Type: 
  Country: None (occurrence: None)
  Receive Date: 20101020
  Receipt Date: 20101005
  Transmission Date: 20110411
  Serious: Yes (Other)
  Sender: FDA-Public Use
  Company Number: PL-GENENTECH-307974

PATIENT
  Sex: Female
  Weight: 68 kg

DRUGS (5)
  1. LUCENTIS [Suspect]
     Indication: CHOROIDAL NEOVASCULARISATION
     Dosage: 0.05 MG, UNK
     Route: 031
     Dates: start: 20100424, end: 20100924
  2. PROPRANOLOL [Concomitant]
     Indication: PRODUCT USED FOR UNKNOWN INDICATION
     Dosage: UNK
  3. SPIRONOL [Concomitant]
     Indication: PRODUCT USED FOR UNKNOWN INDICATION
  4. LIVER HYDROLYSATE [Concomitant]
     Indication: PRODUCT USED FOR UNKNOWN INDICATION
  5. MEDICATION (UNK INGREDIENT) [Concomitant]
     Indication: PRODUCT USED FOR UNKNOWN INDICATION

REACTIONS (2)
  - HYPERTENSION [None]
  - HYPOTENSION [None]
